FAERS Safety Report 23207853 (Version 1)
Quarter: 2023Q4

REPORT INFORMATION
  Report Type: Spontaneous
  Country: US (occurrence: US)
  Receive Date: 20231121
  Receipt Date: 20231121
  Transmission Date: 20240110
  Serious: No
  Sender: FDA-Public Use
  Company Number: US-drreddys-SPO/USA/23/0179442

PATIENT
  Sex: Male

DRUGS (2)
  1. TETRABENAZINE [Suspect]
     Active Substance: TETRABENAZINE
     Indication: Tardive dyskinesia
  2. TETRABENAZINE [Suspect]
     Active Substance: TETRABENAZINE

REACTIONS (2)
  - Drug ineffective [Unknown]
  - Product quality issue [Unknown]
